FAERS Safety Report 7252368-9 (Version None)
Quarter: 2011Q1

REPORT INFORMATION
  Report Type: 
  Country: None (occurrence: None)
  Receive Date: 20110129
  Receipt Date: 20100421
  Transmission Date: 20110831
  Serious: No
  Sender: FDA-Public Use
  Company Number: PR-ABBOTT-10P-131-0640007-00

PATIENT
  Sex: Female

DRUGS (3)
  1. HUMIRA [Suspect]
     Indication: PSORIASIS
     Dosage: 1 PEN
     Route: 058
     Dates: start: 20100122
  2. METHOTREXATE [Concomitant]
     Indication: PSORIASIS
     Route: 048
  3. CLOBETASOL PROPIONATE [Concomitant]
     Indication: PSORIASIS
     Route: 061

REACTIONS (2)
  - PSORIASIS [None]
  - DRUG INEFFECTIVE [None]
